FAERS Safety Report 16886901 (Version 1)
Quarter: 2019Q4

REPORT INFORMATION
  Report Type: Spontaneous
  Country: US (occurrence: US)
  Receive Date: 20191004
  Receipt Date: 20191004
  Transmission Date: 20200122
  Serious: Yes (Other)
  Sender: FDA-Public Use
  Company Number: US-VIIV HEALTHCARE LIMITED-US2019AMR177734

PATIENT
  Sex: Male

DRUGS (1)
  1. TRIUMEQ [Suspect]
     Active Substance: ABACAVIR SULFATE\DOLUTEGRAVIR SODIUM\LAMIVUDINE
     Indication: HIV INFECTION
     Dosage: 600/50/300 MG
     Route: 065
     Dates: start: 201602

REACTIONS (5)
  - Myocardial infarction [Unknown]
  - Fall [Unknown]
  - Spinal operation [Unknown]
  - Cerebrovascular accident [Unknown]
  - Cardiac operation [Unknown]
